FAERS Safety Report 5682201-8 (Version None)
Quarter: 2008Q1

REPORT INFORMATION
  Report Type: 
  Country: None (occurrence: None)
  Receive Date: 20080325
  Receipt Date: 20080313
  Transmission Date: 20080703
  Serious: Yes (Hospitalization)
  Sender: FDA-Public Use
  Company Number: T08-USA-01017-01

PATIENT
  Age: 82 Year
  Sex: Male
  Weight: 72.7 kg

DRUGS (3)
  1. MEMANTINE HCL [Suspect]
     Indication: DEMENTIA ALZHEIMER'S TYPE
  2. ARICEPT [Concomitant]
  3. DIAZEPAM [Concomitant]

REACTIONS (7)
  - BODY TEMPERATURE DECREASED [None]
  - BRADYCARDIA [None]
  - CONVULSION [None]
  - LETHARGY [None]
  - LOSS OF CONSCIOUSNESS [None]
  - MENTAL STATUS CHANGES [None]
  - PRESYNCOPE [None]
